APPROVED DRUG PRODUCT: CIALIS
Active Ingredient: TADALAFIL
Strength: 20MG
Dosage Form/Route: TABLET;ORAL
Application: N021368 | Product #003 | TE Code: AB1
Applicant: ELI LILLY AND CO
Approved: Nov 21, 2003 | RLD: Yes | RS: Yes | Type: RX